FAERS Safety Report 11052287 (Version 5)
Quarter: 2015Q4

REPORT INFORMATION
  Report Type: Spontaneous
  Country: US (occurrence: US)
  Receive Date: 20150421
  Receipt Date: 20151130
  Transmission Date: 20160304
  Serious: Yes (Congenital Anomaly, Other)
  Sender: FDA-Public Use
  Company Number: US-APOTEX-2015AP005253

PATIENT
  Age: 20 Day
  Sex: Male
  Weight: 4 kg

DRUGS (4)
  1. PAXIL [Suspect]
     Active Substance: PAROXETINE HYDROCHLORIDE
     Indication: ANXIETY DISORDER
     Dosage: 10 MG, DAILY
     Route: 064
     Dates: end: 200301
  2. PAXIL [Suspect]
     Active Substance: PAROXETINE HYDROCHLORIDE
     Dosage: 12.5 MG, UNK
     Route: 064
  3. PAXIL [Suspect]
     Active Substance: PAROXETINE HYDROCHLORIDE
     Dosage: 20 MG, UNK
  4. PAXIL CR [Suspect]
     Active Substance: PAROXETINE HYDROCHLORIDE
     Indication: ANXIETY DISORDER
     Dosage: UNK
     Route: 064
     Dates: end: 20030829

REACTIONS (5)
  - Foetal exposure during pregnancy [Unknown]
  - Eustachian tube dysfunction [Unknown]
  - Coronary artery disease [Unknown]
  - Cardiac murmur [Unknown]
  - Ventricular septal defect [Unknown]

NARRATIVE: CASE EVENT DATE: 20030918
